FAERS Safety Report 4584784-8 (Version None)
Quarter: 2005Q1

REPORT INFORMATION
  Report Type: 
  Country: None (occurrence: None)
  Receive Date: 20050217
  Receipt Date: 20050203
  Transmission Date: 20050727
  Serious: Yes (Hospitalization, Other)
  Sender: FDA-Public Use
  Company Number: US-JNJFOC-20041103256

PATIENT
  Sex: Female

DRUGS (22)
  1. REMICADE [Suspect]
     Indication: RHEUMATOID ARTHRITIS
     Route: 042
  2. NYQUIL [Concomitant]
  3. NYQUIL [Concomitant]
  4. NYQUIL [Concomitant]
  5. NYQUIL [Concomitant]
  6. NYQUIL [Concomitant]
  7. PREVACID [Concomitant]
  8. METHOTREXATE [Concomitant]
     Route: 058
  9. POTASSIUM CHLORIDE [Concomitant]
  10. FOLIC ACID [Concomitant]
  11. LIBRIUM [Concomitant]
  12. BENADRYL [Concomitant]
  13. REMERON [Concomitant]
  14. CALCIUM GLUCONATE [Concomitant]
  15. AZOPT [Concomitant]
     Route: 031
  16. TOPROL-XL [Concomitant]
  17. PREMARIN [Concomitant]
  18. GUAIFENSIN [Concomitant]
  19. PLAVIX [Concomitant]
  20. LASIX [Concomitant]
  21. ACTONEL [Concomitant]
  22. PREDNISONE [Concomitant]

REACTIONS (17)
  - ANIMAL BITE [None]
  - ANKLE FRACTURE [None]
  - ARTERIAL OCCLUSIVE DISEASE [None]
  - ARTERIAL THROMBOSIS LIMB [None]
  - ATHEROSCLEROSIS [None]
  - BRONCHITIS [None]
  - BRONCHITIS ACUTE [None]
  - CATARACT [None]
  - CELLULITIS PASTEURELLA [None]
  - FALL [None]
  - HEADACHE [None]
  - JOINT SPRAIN [None]
  - LUNG INFILTRATION [None]
  - MEMORY IMPAIRMENT [None]
  - PYREXIA [None]
  - TENDON DISORDER [None]
  - TRANSIENT ISCHAEMIC ATTACK [None]
